FAERS Safety Report 25546114 (Version 1)
Quarter: 2025Q3

REPORT INFORMATION
  Report Type: Spontaneous
  Country: US (occurrence: US)
  Receive Date: 20250712
  Receipt Date: 20250712
  Transmission Date: 20251020
  Serious: Yes (Other)
  Sender: AIMMUNE
  Company Number: US-ZENPEP LLC-2025AIMT00436

PATIENT

DRUGS (38)
  1. ZENPEP [Suspect]
     Active Substance: PANCRELIPASE AMYLASE\PANCRELIPASE LIPASE\PANCRELIPASE PROTEASE
     Indication: Pancreatic failure
     Route: 048
     Dates: start: 20220517, end: 20220721
  2. ZENPEP [Suspect]
     Active Substance: PANCRELIPASE AMYLASE\PANCRELIPASE LIPASE\PANCRELIPASE PROTEASE
     Route: 048
     Dates: start: 20220726
  3. ZENPEP [Suspect]
     Active Substance: PANCRELIPASE AMYLASE\PANCRELIPASE LIPASE\PANCRELIPASE PROTEASE
     Route: 048
     Dates: start: 202302, end: 202302
  4. LIPITOR [Concomitant]
     Active Substance: ATORVASTATIN CALCIUM
     Indication: Blood cholesterol abnormal
     Dosage: 80 MG, 1X/DAY, AT BEDTIME
     Route: 048
     Dates: start: 20210704, end: 20250203
  5. FLONASE SENSIMIST ALLERGY RELIEF [Concomitant]
     Active Substance: FLUTICASONE FUROATE
     Indication: Hypersensitivity
     Route: 045
     Dates: start: 20200115
  6. DITROPAN [Concomitant]
     Active Substance: OXYBUTYNIN CHLORIDE
     Indication: Bladder disorder
     Dosage: 5 MG, 3X/DAY, TABLET
     Route: 048
     Dates: start: 20150708, end: 20250313
  7. DIOVAN [Concomitant]
     Active Substance: VALSARTAN
     Indication: Blood cholesterol abnormal
     Dosage: 180 MG, 1X/DAY, TABLET
     Route: 048
     Dates: start: 20210608, end: 20250203
  8. CALCIUM\VITAMIN D [Concomitant]
     Active Substance: CALCIUM\VITAMIN D
     Indication: Ill-defined disorder
     Route: 048
     Dates: start: 20180808
  9. PEPCID [Concomitant]
     Active Substance: FAMOTIDINE
     Indication: Dyspepsia
     Dosage: TABLET
     Route: 048
     Dates: start: 20210719, end: 20241231
  10. GLUCOPHAGE XR [Concomitant]
     Active Substance: METFORMIN HYDROCHLORIDE
     Indication: Type 2 diabetes mellitus
     Dosage: 500 MG, 2X/DAY, ER TABLET 24HR
     Route: 048
     Dates: start: 20181205, end: 20250228
  11. MAGNESIUM [Concomitant]
     Active Substance: MAGNESIUM
     Indication: Restless legs syndrome
     Dosage: 250 MG, 1X/DAY
     Route: 048
     Dates: start: 20220221
  12. LEVSIN [Concomitant]
     Active Substance: HYOSCYAMINE SULFATE
     Indication: Pain
     Dosage: 0.125 MG, 4X/DAY, AS NEEDED
     Route: 048
     Dates: start: 20240321
  13. PLAVIX [Concomitant]
     Active Substance: CLOPIDOGREL BISULFATE
     Indication: Transient ischaemic attack
     Dosage: 75 MG, 1X/DAY TABLET
     Route: 048
     Dates: start: 20210704
  14. VITAMIN B12 [Concomitant]
     Active Substance: CYANOCOBALAMIN
     Indication: Vitamin B12 decreased
     Route: 048
     Dates: start: 20200520
  15. LEXAPRO [Concomitant]
     Active Substance: ESCITALOPRAM OXALATE
     Indication: Depression
     Dosage: 10 MG, 1X/DAY, AT BEDTIME
     Route: 048
     Dates: start: 20141021, end: 20250106
  16. SINGULAIR [Concomitant]
     Active Substance: MONTELUKAST SODIUM
     Indication: Hypersensitivity
     Dosage: 10 MG, 1X/DAY, AT BEDTIME
     Route: 048
     Dates: start: 20151008, end: 20250210
  17. GEMTESA [Concomitant]
     Active Substance: VIBEGRON
     Indication: Bladder disorder
  18. INDERAL LA [Concomitant]
     Active Substance: PROPRANOLOL HYDROCHLORIDE
     Indication: Tremor
     Dosage: 60 MG, 1X/DAY, CR CAP ER 24HR
     Route: 048
     Dates: start: 20240208, end: 20250605
  19. DEXILANT [Concomitant]
     Active Substance: DEXLANSOPRAZOLE
     Indication: Product used for unknown indication
     Dosage: 60 MG, 1X/DAY, DR ORAL CAP, EVERY MORNING 30 MIN BEFORE BREAKFAST
     Dates: start: 20220513
  20. MIRAPEX [Concomitant]
     Active Substance: PRAMIPEXOLE DIHYDROCHLORIDE
     Indication: Product used for unknown indication
     Dosage: 0.125 MG, 1X/DAY, TABLET AT BEDTIME
     Route: 048
     Dates: start: 20210310, end: 20241209
  21. CETIRIZINE HCL [Concomitant]
     Active Substance: CETIRIZINE HYDROCHLORIDE
     Indication: Product used for unknown indication
     Dosage: 10 MG, 1X/DAY, TABLET AT BEDTIME
     Route: 048
     Dates: start: 20220221
  22. CHOLESTYRAMINE [Concomitant]
     Active Substance: CHOLESTYRAMINE
     Indication: Diarrhoea
     Dosage: 4 MG, 2X/DAY, ORAL PACKET, SWALLOW AS NEEDED
     Route: 048
     Dates: start: 20210628
  23. MELATONIN [Concomitant]
     Active Substance: MELATONIN
     Indication: Product used for unknown indication
     Route: 048
     Dates: start: 20200115
  24. VITAMINS NOS [Concomitant]
     Active Substance: VITAMINS
     Indication: Product used for unknown indication
     Dosage: 1 TABLETS, 1X/DAY
     Route: 048
     Dates: start: 20210921
  25. DEXTROSE [Concomitant]
     Active Substance: DEXTROSE MONOHYDRATE
     Indication: Blood glucose abnormal
     Dates: start: 20210712
  26. DEXTROSE [Concomitant]
     Active Substance: DEXTROSE MONOHYDRATE
     Dates: start: 20210712
  27. DEXTROSE [Concomitant]
     Active Substance: DEXTROSE MONOHYDRATE
     Dates: start: 20210712
  28. DEXTROSE [Concomitant]
     Active Substance: DEXTROSE MONOHYDRATE
     Dates: start: 20210713
  29. PEPTO-BISMOL [Concomitant]
     Active Substance: BISMUTH SUBSALICYLATE
     Indication: Product used for unknown indication
     Route: 048
     Dates: start: 20220910
  30. CEFTRIAXONE SODIUM [Concomitant]
     Active Substance: CEFTRIAXONE SODIUM
     Indication: Product used for unknown indication
     Dosage: 500 MG, 1X/DAY,  INJECTION SOLUTION RECONSTITUTED, TO BE GIVEN IM ON SATURDAY AND SUNDAY
     Route: 030
     Dates: start: 20230303
  31. IFEREX [Concomitant]
     Indication: Product used for unknown indication
     Dosage: 150 MG, 1X/DAY, EVERY MORNING WITH VITAMIN C
     Route: 048
     Dates: start: 20230220
  32. BENADRYL ALLERGY [Concomitant]
     Active Substance: DIPHENHYDRAMINE HYDROCHLORIDE
     Indication: Product used for unknown indication
     Dosage: 50 MG, 1X/DAY AT BEDTIME, EXTRA STRONG TABLET
     Route: 048
     Dates: start: 20230620
  33. OMNICEF [Concomitant]
     Active Substance: CEFDINIR
     Indication: Product used for unknown indication
     Dosage: 300 MG, 2X/DAY, CAPSULE
     Route: 048
     Dates: start: 20231111, end: 20250130
  34. DESONIDE [Concomitant]
     Active Substance: DESONIDE
     Indication: Product used for unknown indication
     Route: 061
     Dates: start: 20240118
  35. AMOXIL [Concomitant]
     Active Substance: AMOXICILLIN
     Indication: Product used for unknown indication
     Route: 048
     Dates: start: 20240409
  36. FERRIC POLYSACCHARIDE COMPLEX [Concomitant]
     Active Substance: FERRIC POLYSACCHARIDE COMPLEX
     Indication: Product used for unknown indication
     Dosage: 150 MG, 1X/DAY, CAPSULES
     Route: 048
     Dates: start: 20241118
  37. LEVAQUIN [Concomitant]
     Active Substance: LEVOFLOXACIN
     Dosage: 500 MG, 2X/DAY, FOR SEVEN DAYS
     Route: 048
     Dates: start: 20240104
  38. MACROBID [Concomitant]
     Active Substance: NITROFURANTOIN\NITROFURANTOIN MONOHYDRATE
     Indication: Product used for unknown indication
     Route: 048
     Dates: start: 20241118, end: 20250130

REACTIONS (10)
  - Urinary retention [Unknown]
  - Expired product administered [Unknown]
  - Iron deficiency anaemia [Unknown]
  - Dysphagia [Unknown]
  - Haematuria [Unknown]
  - Vomiting [Unknown]
  - Gastritis [Unknown]
  - Abdominal pain upper [Recovered/Resolved with Sequelae]
  - Nausea [Unknown]
  - Nausea [Unknown]

NARRATIVE: CASE EVENT DATE: 20230201
